FAERS Safety Report 7939250-6 (Version None)
Quarter: 2011Q4

REPORT INFORMATION
  Report Type: 
  Country: None (occurrence: None)
  Receive Date: 20111124
  Receipt Date: 20111116
  Transmission Date: 20120403
  Serious: Yes (Other)
  Sender: FDA-Public Use
  Company Number: US-JNJFOC-20111007954

PATIENT
  Age: 29 Year
  Sex: Male

DRUGS (4)
  1. PURINETHOL [Concomitant]
     Route: 065
  2. REMICADE [Suspect]
     Indication: COLITIS ULCERATIVE
     Route: 042
     Dates: start: 20090801, end: 20110901
  3. MERCAPTOPURINE [Suspect]
     Indication: PRODUCT USED FOR UNKNOWN INDICATION
     Route: 065
  4. LIALDA [Concomitant]
     Route: 065

REACTIONS (2)
  - PNEUMONIA FUNGAL [None]
  - COCCIDIOIDOMYCOSIS [None]
